FAERS Safety Report 10084936 (Version 2)
Quarter: 2014Q2

REPORT INFORMATION
  Report Type: Spontaneous
  Country: US (occurrence: None)
  Receive Date: 20140403
  Receipt Date: 20140429
  Transmission Date: 20141212
  Serious: Yes (Other)
  Sender: FDA-Public Use
  Company Number: AUR-APL-2014-00770

PATIENT
  Age: 35 Year
  Sex: Female

DRUGS (5)
  1. DULOXETINE [Suspect]
     Indication: BACK PAIN
     Dosage: 1 DOSAGE FORMS (1 DOSAGE FORMS, 1 IN 1D)
     Dates: start: 20140102, end: 20140119
  2. DULOXETINE [Suspect]
     Indication: DEPRESSION
     Dosage: 1 DOSAGE FORMS (1 DOSAGE FORMS, 1 IN 1D)
     Dates: start: 20140102, end: 20140119
  3. DULOXETINE [Suspect]
     Indication: OFF LABEL USE
     Dosage: 1 DOSAGE FORMS (1 DOSAGE FORMS, 1 IN 1D)
     Dates: start: 20140102, end: 20140119
  4. ADVIL (MEFENAMIC ACID) [Concomitant]
  5. MELATONIN (MELATONIN) [Concomitant]

REACTIONS (8)
  - Dizziness [None]
  - Somnolence [None]
  - Drug ineffective [None]
  - Product substitution issue [None]
  - Impaired driving ability [None]
  - Urinary retention [None]
  - Back pain [None]
  - Migraine [None]
